FAERS Safety Report 9498286 (Version 1)
Quarter: 2013Q3

REPORT INFORMATION
  Report Type: Report from Study
  Country: CA (occurrence: CA)
  Receive Date: 20130904
  Receipt Date: 20130904
  Transmission Date: 20140515
  Serious: Yes (Other)
  Sender: FDA-Public Use
  Company Number: CA-JNJFOC-20130900096

PATIENT
  Age: 47 Year
  Sex: Female
  Weight: 101 kg

DRUGS (4)
  1. REMICADE [Suspect]
     Indication: PSORIASIS
     Route: 042
     Dates: start: 20120619
  2. DEPAKENE [Concomitant]
     Route: 048
  3. CYMBALTA [Concomitant]
     Route: 065
  4. MARVELON [Concomitant]
     Route: 065

REACTIONS (2)
  - Benign uterine neoplasm [Not Recovered/Not Resolved]
  - Increased appetite [Not Recovered/Not Resolved]
